FAERS Safety Report 8819786 (Version 1)
Quarter: 2012Q4

REPORT INFORMATION
  Report Type: 
  Country: US (occurrence: US)
  Receive Date: 20121001
  Receipt Date: 20121001
  Transmission Date: 20130627
  Serious: Yes (Hospitalization)
  Sender: FDA-Public Use
  Company Number: US-BAYER-2012-099945

PATIENT
  Age: 83 Year
  Sex: Female
  Weight: 104 kg

DRUGS (16)
  1. AFLIBERCEPT [Suspect]
     Indication: DIABETIC RETINAL OEDEMA
     Dosage: masked VEGF Trap-Eye or laser
     Route: 031
     Dates: start: 20111212
  2. COUMADIN [Suspect]
     Indication: PULMONARY EMBOLISM
     Dosage: 2.5 mg, QD
     Route: 048
     Dates: start: 2005, end: 20120821
  3. ACETYLSALICYLIC ACID({=100 MG) [Suspect]
     Indication: THROMBOSIS PROPHYLAXIS
     Dosage: 81 mg, QD
     Route: 048
  4. LEVOTHYROXINE [Concomitant]
     Indication: HYPOTHYROIDISM
     Dosage: 12 ?g, QD
     Route: 048
     Dates: start: 1991
  5. ESGIC [Concomitant]
     Indication: HEADACHE
     Dosage: 50/500/40 mg (PRN)
     Route: 048
     Dates: start: 20120210
  6. LASIX [Concomitant]
  7. ALLOPURINOL [Concomitant]
     Indication: HYPERURICAEMIA
     Dosage: 100 mg, QD
     Route: 048
     Dates: start: 1994
  8. VITAMIN E [Concomitant]
     Indication: VITAMIN SUPPLEMENTATION
     Dosage: 200 iu, QD
     Route: 048
     Dates: start: 2010, end: 20120830
  9. SIMVASTATIN [Concomitant]
     Indication: HYPERLIPIDAEMIA
     Dosage: UNK
     Route: 048
     Dates: start: 1991
  10. NOVOLOG [Concomitant]
     Indication: DIABETES MELLITUS
     Dosage: 18 iu, BID
     Route: 058
     Dates: start: 2009
  11. OMEPRAZOLE [Concomitant]
     Indication: GASTROOESOPHAGEAL REFLUX DISEASE
     Dosage: 20 mg, QD
     Route: 048
     Dates: start: 2002
  12. CALCITROL [Concomitant]
     Indication: VITAMIN D DEFICIENCY
     Dosage: 0.25 mg, QOD
     Route: 048
  13. NORVASC [Concomitant]
     Indication: HYPERTENSION
     Dosage: 8 mg, QD
     Route: 048
     Dates: start: 20120210
  14. BYSTOLIC [Concomitant]
     Indication: HYPERTENSION
     Dosage: 10 mg, QD
     Route: 048
     Dates: start: 20120210
  15. VITAMIN D [Concomitant]
  16. COREG [Concomitant]

REACTIONS (2)
  - Haematoma [Recovered/Resolved]
  - Anaemia [Recovered/Resolved]
